FAERS Safety Report 9920799 (Version 2)
Quarter: 2014Q1

REPORT INFORMATION
  Report Type: Spontaneous
  Country: US (occurrence: US)
  Receive Date: 20140224
  Receipt Date: 20140224
  Transmission Date: 20141002
  Serious: Yes (Hospitalization, Other)
  Sender: FDA-Public Use
  Company Number: US-ROCHE-1089110

PATIENT
  Sex: Female
  Weight: 47.67 kg

DRUGS (5)
  1. KLONOPIN [Suspect]
     Indication: ANXIETY
     Route: 065
  2. XANAX [Suspect]
     Indication: ANXIETY
     Route: 048
  3. SEROQUEL [Suspect]
     Indication: ANXIETY
     Route: 065
     Dates: start: 2010
  4. VALIUM [Suspect]
     Indication: PRODUCT USED FOR UNKNOWN INDICATION
     Route: 065
  5. ATIVAN [Concomitant]

REACTIONS (6)
  - Gastrointestinal disorder [Unknown]
  - Anaphylactic shock [Unknown]
  - Movement disorder [Unknown]
  - Hypovitaminosis [Unknown]
  - Drug ineffective [Unknown]
  - Convulsion [Unknown]
